FAERS Safety Report 4721302-5 (Version None)
Quarter: 2005Q3

REPORT INFORMATION
  Report Type: 
  Country: None (occurrence: None)
  Receive Date: 20050721
  Receipt Date: 20040604
  Transmission Date: 20060218
  Serious: Yes (Life-Threatening, Other)
  Sender: FDA-Public Use
  Company Number: US-BRISTOL-MYERS SQUIBB COMPANY-12606695

PATIENT
  Age: 74 Year
  Sex: Male

DRUGS (9)
  1. COUMADIN [Suspect]
     Indication: CEREBROVASCULAR ACCIDENT
     Dosage: 6/9-6/10=NONE, 6/11=2.5MG, 6/12=5MG, 6/13=5MG, 6/14 VS 6/22- TO DATE =7.5MG DAILY AT NIGHT
     Route: 048
     Dates: start: 20031105
  2. LOTREL [Concomitant]
     Dosage: IN THE AM
  3. DIOVAN [Concomitant]
     Dosage: IN THE AM
  4. HYDROCHLOROTHIAZIDE [Concomitant]
     Dosage: IN THE AM
  5. FAMOTIDINE [Concomitant]
     Dosage: IN THE AM
  6. HUMALOG [Concomitant]
     Dosage: 7.5 UNITS IN THE MORNING; 2.5 UNITS IN THE PM
  7. ZOCOR [Concomitant]
     Dosage: IN THE PM
  8. TOPROL-XL [Concomitant]
  9. GLUCOPHAGE [Concomitant]
     Dosage: IN THE PM

REACTIONS (1)
  - PROTHROMBIN TIME RATIO INCREASED [None]
